FAERS Safety Report 5931074-4 (Version None)
Quarter: 2008Q4

REPORT INFORMATION
  Report Type: 
  Country: None (occurrence: None)
  Receive Date: 20081027
  Receipt Date: 20081015
  Transmission Date: 20090506
  Serious: Yes (Hospitalization)
  Sender: FDA-Public Use
  Company Number: US-WYE-H02475108

PATIENT
  Sex: Female
  Weight: 69 kg

DRUGS (21)
  1. RAPAMUNE [Suspect]
     Indication: PROPHYLAXIS AGAINST TRANSPLANT REJECTION
     Route: 048
     Dates: start: 20060917
  2. PREDNISONE TAB [Concomitant]
     Indication: PROPHYLAXIS AGAINST TRANSPLANT REJECTION
     Dates: start: 20061110
  3. CARVEDILOL [Concomitant]
     Indication: HYPERTENSION
     Dosage: 37.5 MG, FREQUENCY UNSPECIFIED
     Dates: start: 20070420
  4. CLONIDINE [Concomitant]
     Indication: HYPERTENSION
     Dosage: TTS-3 PATCH
     Dates: start: 20061023
  5. FUROSEMIDE [Concomitant]
     Indication: HYPERTENSION
     Dosage: 20 MG/40 MG, FREQUENCY UNSPECIFIED
     Dates: start: 20070420
  6. MINOXIDIL [Concomitant]
     Indication: HYPERTENSION
     Dosage: 7.5 MG, FREQUENCY UNSPECIFIED
     Dates: start: 20070410
  7. BACTRIM DS [Concomitant]
     Indication: ANTI-INFECTIVE THERAPY
     Dosage: 1 TABLET, FREQUENCY UNSPECIFIED
     Dates: start: 20070518
  8. VALGANCICLOVIR HCL [Concomitant]
     Indication: ANTI-INFECTIVE THERAPY
     Dosage: 500 MG, FREQUENCY UNSPECIFIED
     Dates: start: 20070410
  9. ESOMEPRAZOLE MAGNESIUM [Concomitant]
     Dosage: 40 MG, FREQUENCY UNSPECIFIED
     Dates: start: 20061106
  10. MAGNESIUM OXIDE [Concomitant]
     Dosage: 400 MG, FREQUENCY UNSPECIFIED
     Dates: start: 20070420
  11. SODIUM BICARBONATE [Concomitant]
     Dosage: 650 MG, FREQUENCY UNSPECIFIED
     Dates: start: 20070309
  12. ISOSORBIDE MONONITRATE [Concomitant]
     Dosage: 90 MG, FREQUENCY UNSPECIFIED
     Dates: start: 20070410
  13. HYDROXYZINE [Concomitant]
     Dosage: 10 MG, FREQUENCY UNSPECIFIED
     Dates: start: 20070420
  14. PROCRIT [Concomitant]
     Dosage: 40,000 UNITS, FREQUENCY UNSPECIFIED
     Dates: start: 20061231
  15. FERROUS GLUCONATE [Concomitant]
     Dosage: 325 MG, FREQUENCY UNSPECIFIED
     Dates: start: 20070420
  16. MULTIVITAMINS, COMBINATIONS [Concomitant]
     Dosage: 1 MG, FREQUENCY UNSPECIFIED
     Dates: start: 20070420
  17. SALBUTAMOL [Concomitant]
     Dosage: 2.5 MG, FREQUENCY UNSPECIFIED
     Dates: start: 20070420
  18. OXYCODONE HCL [Concomitant]
     Dosage: 10 MG, FREQUENCY UNSPECIFIED
     Dates: start: 20070420
  19. PERCOCET [Concomitant]
     Dosage: 1 TABLET, FREQUENCY UNSPECIFIED
     Dates: start: 20070310
  20. AMBIEN [Concomitant]
     Dosage: 10 TABLETS, FREQUENCY UNSPECIFIED
     Dates: start: 20070309
  21. NEORAL [Concomitant]
     Indication: PROPHYLAXIS AGAINST TRANSPLANT REJECTION
     Route: 048
     Dates: start: 20070401

REACTIONS (4)
  - ENTEROCOCCAL INFECTION [None]
  - PNEUMONIA [None]
  - RESPIRATORY FAILURE [None]
  - TONGUE OEDEMA [None]
